FAERS Safety Report 21818575 (Version 6)
Quarter: 2023Q2

REPORT INFORMATION
  Report Type: Report from Study
  Country: US (occurrence: US)
  Receive Date: 20230104
  Receipt Date: 20230515
  Transmission Date: 20230722
  Serious: Yes (Other)
  Sender: FDA-Public Use
  Company Number: US-002147023-NVSC2023US001586

PATIENT
  Sex: Male

DRUGS (1)
  1. ENTRESTO [Suspect]
     Active Substance: SACUBITRIL\VALSARTAN
     Indication: Product used for unknown indication
     Dosage: 1 DOSAGE FORM, BID (49/51 MG)
     Route: 048
     Dates: start: 2022

REACTIONS (6)
  - Peripheral artery occlusion [Unknown]
  - Arthralgia [Unknown]
  - Gait disturbance [Unknown]
  - Decreased activity [Unknown]
  - Hypersensitivity [Unknown]
  - Throat clearing [Unknown]
